FAERS Safety Report 5643510-1 (Version None)
Quarter: 2008Q1

REPORT INFORMATION
  Report Type: 
  Country: None (occurrence: None)
  Receive Date: 20080228
  Receipt Date: 20080221
  Transmission Date: 20080703
  Serious: Yes (Hospitalization, Disabling)
  Sender: FDA-Public Use
  Company Number: US-BOEHRINGER INGELHEIM GMBH, GERMANY-2008-DE-01124GD

PATIENT
  Age: 65 Year
  Sex: Male

DRUGS (8)
  1. CLONIDINE [Suspect]
     Indication: NERVE BLOCK
  2. BUPIVACAINE [Suspect]
     Indication: NERVE BLOCK
     Dosage: 30 ML (0.5%)
  3. EPINEPHRINE [Suspect]
     Indication: NERVE BLOCK
     Dosage: 30 ML (1:400000)
  4. PRAVASTATIN [Concomitant]
     Route: 048
  5. LEVOTHYROXINE SODIUM [Concomitant]
     Route: 048
  6. OXYBUTYNIN CHLORIDE [Concomitant]
     Route: 048
  7. FENTANYL [Concomitant]
     Indication: SEDATIVE THERAPY
     Route: 042
  8. MIDAZOLAM HCL [Concomitant]
     Indication: SEDATIVE THERAPY
     Route: 042

REACTIONS (6)
  - BRACHIAL PLEXOPATHY [None]
  - HYPOTENSION [None]
  - MONOPARESIS [None]
  - MUSCLE ATROPHY [None]
  - MUSCULOSKELETAL STIFFNESS [None]
  - RADICULITIS BRACHIAL [None]
